FAERS Safety Report 15629635 (Version 4)
Quarter: 2020Q2

REPORT INFORMATION
  Report Type: Spontaneous
  Country: CA (occurrence: CA)
  Receive Date: 20181117
  Receipt Date: 20200422
  Transmission Date: 20200713
  Serious: Yes (Other)
  Sender: FDA-Public Use
  Company Number: CA-ABBVIE-18K-028-2557205-00

PATIENT
  Age: 64 Year
  Sex: Female

DRUGS (12)
  1. ARAVA [Suspect]
     Active Substance: LEFLUNOMIDE
     Indication: SPINAL OSTEOARTHRITIS
     Route: 065
  2. ARAVA [Suspect]
     Active Substance: LEFLUNOMIDE
     Indication: RHEUMATOID ARTHRITIS
     Route: 065
  3. ORENCIA [Suspect]
     Active Substance: ABATACEPT
     Indication: RHEUMATOID ARTHRITIS
  4. HUMIRA [Suspect]
     Active Substance: ADALIMUMAB
     Indication: RHEUMATOID ARTHRITIS
  5. METHOTREXATE. [Suspect]
     Active Substance: METHOTREXATE
     Indication: RHEUMATOID ARTHRITIS
  6. PLAQUENIL [Suspect]
     Active Substance: HYDROXYCHLOROQUINE SULFATE
     Indication: RHEUMATOID ARTHRITIS
  7. ENBREL [Suspect]
     Active Substance: ETANERCEPT
     Indication: SPINAL OSTEOARTHRITIS
     Route: 058
  8. ENBREL [Suspect]
     Active Substance: ETANERCEPT
     Indication: RHEUMATOID ARTHRITIS
  9. METHOTREXATE. [Suspect]
     Active Substance: METHOTREXATE
     Indication: SPINAL OSTEOARTHRITIS
     Route: 065
  10. ORENCIA [Suspect]
     Active Substance: ABATACEPT
     Indication: SPINAL OSTEOARTHRITIS
     Route: 042
  11. HUMIRA [Suspect]
     Active Substance: ADALIMUMAB
     Indication: SPINAL OSTEOARTHRITIS
     Route: 058
  12. PLAQUENIL [Suspect]
     Active Substance: HYDROXYCHLOROQUINE SULFATE
     Indication: SPINAL OSTEOARTHRITIS
     Route: 065

REACTIONS (11)
  - Knee arthroplasty [Not Recovered/Not Resolved]
  - Therapeutic product effect decreased [Not Recovered/Not Resolved]
  - General physical health deterioration [Not Recovered/Not Resolved]
  - Spinal disorder [Not Recovered/Not Resolved]
  - Drug ineffective [Not Recovered/Not Resolved]
  - Finger deformity [Not Recovered/Not Resolved]
  - Gait disturbance [Not Recovered/Not Resolved]
  - Arthritis [Not Recovered/Not Resolved]
  - Contraindicated product administered [Not Recovered/Not Resolved]
  - Arthropathy [Not Recovered/Not Resolved]
  - Rheumatoid arthritis [Not Recovered/Not Resolved]
